FAERS Safety Report 4768139-9 (Version None)
Quarter: 2005Q3

REPORT INFORMATION
  Report Type: 
  Country: None (occurrence: None)
  Receive Date: 20050912
  Receipt Date: 20050912
  Transmission Date: 20060218
  Serious: Yes (Life-Threatening, Hospitalization)
  Sender: FDA-Public Use
  Company Number: None

PATIENT
  Age: 22 Year
  Sex: Female
  Weight: 63.5036 kg

DRUGS (2)
  1. RISPERDAL [Suspect]
     Indication: MAJOR DEPRESSION
     Dosage: 1MG TID PO
     Route: 048
  2. ZOLOFT [Concomitant]

REACTIONS (7)
  - CATATONIA [None]
  - MUSCLE TWITCHING [None]
  - MUSCULAR WEAKNESS [None]
  - NEUROLEPTIC MALIGNANT SYNDROME [None]
  - PYREXIA [None]
  - TACHYCARDIA [None]
  - TARDIVE DYSKINESIA [None]
